FAERS Safety Report 5110264-7 (Version None)
Quarter: 2006Q3

REPORT INFORMATION
  Report Type: 
  Country: None (occurrence: None)
  Receive Date: 20060921
  Receipt Date: 20060825
  Transmission Date: 20061208
  Serious: Yes (Other)
  Sender: FDA-Public Use
  Company Number: RU-GLAXOSMITHKLINE-B0436496A

PATIENT
  Age: 21 Year
  Sex: Female

DRUGS (4)
  1. LAMICTAL [Suspect]
     Indication: EPILEPSY
     Route: 048
     Dates: start: 20060601, end: 20060901
  2. BARBITURATE [Concomitant]
     Indication: EPILEPSY
     Dosage: .5TAB PER DAY
  3. DIPIRIDAMOL [Concomitant]
  4. MULTIVITAMIN [Concomitant]
     Indication: PREGNANCY
     Dates: start: 20050101

REACTIONS (2)
  - ABORTION THREATENED [None]
  - CONVULSION [None]
